FAERS Safety Report 6115460-8 (Version None)
Quarter: 2009Q1

REPORT INFORMATION
  Report Type: 
  Country: None (occurrence: None)
  Receive Date: 20090313
  Receipt Date: 20090302
  Transmission Date: 20090719
  Serious: Yes (Other)
  Sender: FDA-Public Use
  Company Number: FI-ASTRAZENECA-2009SE00999

PATIENT
  Age: 73 Year
  Sex: Male

DRUGS (12)
  1. NEXIUM [Suspect]
     Indication: PROPHYLAXIS
     Route: 048
  2. MAREVAN [Interacting]
  3. PARA-TABS [Concomitant]
     Indication: PROCEDURAL PAIN
     Dosage: ONE TABLET THREE TO FOUR TIMES A DAY
  4. PANACOD [Concomitant]
     Indication: PROCEDURAL PAIN
     Dosage: TWO TABLETS THREE TO FOUR TIMES A DAY
  5. FRAGMIN [Concomitant]
     Indication: HIP SURGERY
  6. 20 UNSPECIFIED VITAMIN PILLS [Concomitant]
  7. BLOCANOL [Concomitant]
  8. RENITEC COMP [Concomitant]
     Route: 048
  9. NORVASC [Concomitant]
     Route: 048
  10. DUREKAL [Concomitant]
     Route: 048
  11. MANGAN [Concomitant]
  12. MULTI-VITAMIN [Concomitant]

REACTIONS (4)
  - DRUG INTERACTION [None]
  - EPISTAXIS [None]
  - ERYSIPELAS [None]
  - INTERNATIONAL NORMALISED RATIO INCREASED [None]
